FAERS Safety Report 26119187 (Version 1)
Quarter: 2025Q4

REPORT INFORMATION
  Report Type: Spontaneous
  Country: JP (occurrence: JP)
  Receive Date: 20251204
  Receipt Date: 20251204
  Transmission Date: 20260117
  Serious: Yes (Other)
  Sender: STRIDES
  Company Number: JP-STRIDES ARCOLAB LIMITED-2025SP015019

PATIENT
  Age: 12 Month
  Sex: Female

DRUGS (4)
  1. AMPICILLIN [Suspect]
     Active Substance: AMPICILLIN
     Indication: Product used for unknown indication
     Dosage: UNK
     Route: 065
  2. AMPICILLIN [Suspect]
     Active Substance: AMPICILLIN
     Dosage: UNK
     Route: 065
  3. PHENOBARBITAL [Suspect]
     Active Substance: PHENOBARBITAL
     Indication: Sedation
     Dosage: UNK
     Route: 065
  4. AMOXICILLIN [Suspect]
     Active Substance: AMOXICILLIN
     Indication: Product used for unknown indication
     Dosage: UNK, SINGLE DOSE
     Route: 065

REACTIONS (1)
  - Drug reaction with eosinophilia and systemic symptoms [Recovering/Resolving]
